FAERS Safety Report 8034531-2 (Version None)
Quarter: 2011Q4

REPORT INFORMATION
  Report Type: 
  Country: None (occurrence: None)
  Receive Date: 20111202
  Receipt Date: 20110818
  Transmission Date: 20120403
  Serious: No
  Sender: FDA-Public Use
  Company Number: PHEH2011US01986

PATIENT
  Age: 22 Year
  Sex: Female

DRUGS (1)
  1. FANAPT [Suspect]
     Dosage: 4 MG, BID, ORAL
     Route: 048

REACTIONS (1)
  - GALACTORRHOEA [None]
